FAERS Safety Report 16284951 (Version 1)
Quarter: 2019Q2

REPORT INFORMATION
  Report Type: Report from Study
  Country: US (occurrence: US)
  Receive Date: 20190508
  Receipt Date: 20190508
  Transmission Date: 20190711
  Serious: Yes (Hospitalization, Other)
  Sender: FDA-Public Use
  Company Number: US-SA-2015SA133500

PATIENT
  Age: 67 Year
  Sex: Female

DRUGS (2)
  1. INSULIN GLARGINE [Suspect]
     Active Substance: INSULIN GLARGINE
     Indication: TYPE 2 DIABETES MELLITUS
     Dosage: 42 U, HS, DAILY AT BED TIME
  2. INSULIN GLARGINE [Suspect]
     Active Substance: INSULIN GLARGINE
     Dosage: 48 U, QD
     Dates: start: 20110101, end: 20150826

REACTIONS (7)
  - Blood glucose increased [Unknown]
  - Haemorrhage [Unknown]
  - Sepsis [Unknown]
  - Wound [Not Recovered/Not Resolved]
  - Myocardial infarction [Recovered/Resolved]
  - Wrong technique in product usage process [Unknown]
  - Cardiac disorder [Recovered/Resolved]

NARRATIVE: CASE EVENT DATE: 20150826
